APPROVED DRUG PRODUCT: VIREAD
Active Ingredient: TENOFOVIR DISOPROXIL FUMARATE
Strength: 40MG/SCOOPFUL
Dosage Form/Route: POWDER;ORAL
Application: N022577 | Product #001
Applicant: GILEAD SCIENCES INC
Approved: Jan 18, 2012 | RLD: Yes | RS: Yes | Type: RX